FAERS Safety Report 6052826-9 (Version None)
Quarter: 2009Q1

REPORT INFORMATION
  Report Type: 
  Country: None (occurrence: None)
  Receive Date: 20090122
  Receipt Date: 20090108
  Transmission Date: 20090719
  Serious: Yes (Death)
  Sender: FDA-Public Use
  Company Number: KV200900049

PATIENT
  Age: 71 Year
  Sex: Male

DRUGS (9)
  1. ISOSORBIDE MONONITRATE [Suspect]
     Indication: CARDIAC DISORDER
     Dosage: 30 MG, QD, ORAL
     Route: 048
     Dates: start: 20060101, end: 20080901
  2. LISINOPRIL [Concomitant]
  3. PROTONIX [Concomitant]
  4. METFORMIN HCL [Concomitant]
  5. LYRICA [Concomitant]
  6. GLIPIZIDE [Concomitant]
  7. PLAVIX [Concomitant]
  8. SIMVASTATIN [Concomitant]
  9. HYDROCHLOROTHIAZIDE [Concomitant]

REACTIONS (2)
  - ARTERIOSCLEROSIS [None]
  - HYPERTENSION [None]
